FAERS Safety Report 12481590 (Version 10)
Quarter: 2019Q3

REPORT INFORMATION
  Report Type: Report from Study
  Country: CA (occurrence: CA)
  Receive Date: 20160620
  Receipt Date: 20190702
  Transmission Date: 20191004
  Serious: Yes (Death, Hospitalization)
  Sender: FDA-Public Use
  Company Number: CA-PFIZER INC-2016297069

PATIENT
  Age: 56 Year
  Sex: Female
  Weight: 58 kg

DRUGS (20)
  1. LETROZOLE. [Suspect]
     Active Substance: LETROZOLE
     Dosage: 2.5 MG, DAILY
     Route: 048
     Dates: start: 20160608
  2. STATEX /00036302/ [Concomitant]
     Active Substance: MORPHINE SULFATE
     Dosage: 10 MG, AS NEEDED EVERY 2 TO 4 HOURS
     Route: 048
     Dates: start: 20151230
  3. OMEPRAZOLE. [Concomitant]
     Active Substance: OMEPRAZOLE
     Dosage: 40 MG, DAILY
     Route: 048
     Dates: start: 20160524
  4. LETROZOLE. [Suspect]
     Active Substance: LETROZOLE
     Indication: BREAST CANCER METASTATIC
     Dosage: 2.5 MG, DAILY
     Route: 048
     Dates: start: 20160128, end: 20160522
  5. ACYCLOVIR /00587301/ [Concomitant]
     Active Substance: ACYCLOVIR
     Indication: HERPES VIRUS INFECTION
     Dosage: 800 MG, 2X/DAY (HALF A TABLET)
     Route: 048
     Dates: start: 2002
  6. PALBOCICLIB [Suspect]
     Active Substance: PALBOCICLIB
     Indication: BREAST CANCER METASTATIC
     Dosage: UNK, CYCLIC
     Route: 048
     Dates: start: 20160128, end: 2016
  7. ATIVAN [Concomitant]
     Active Substance: LORAZEPAM
     Indication: ANXIETY
     Dosage: 1 MG, AS NEEDED
     Route: 048
     Dates: start: 20151224
  8. MIRTAZAPINE. [Concomitant]
     Active Substance: MIRTAZAPINE
     Indication: ANXIETY
     Dosage: 30 MG, DAILY AT NIGHT (1/4 TABLET)
     Route: 048
     Dates: start: 20160204
  9. BISACODYL. [Concomitant]
     Active Substance: BISACODYL
     Indication: CONSTIPATION
  10. GABAPENTIN. [Concomitant]
     Active Substance: GABAPENTIN
     Indication: PAIN
     Dosage: UNK
     Dates: start: 2013
  11. GABAPENTIN. [Concomitant]
     Active Substance: GABAPENTIN
     Indication: NEURALGIA
     Dosage: 200 MG, DAILY AT NIGHT
     Route: 048
     Dates: start: 20160504
  12. RESTORALAX [Concomitant]
     Active Substance: POLYETHYLENE GLYCOL 3350
     Indication: CONSTIPATION
     Dosage: 17 G, AS NEEDED
     Route: 048
     Dates: start: 20160104
  13. PAMIDRONATE DISODIUM. [Concomitant]
     Active Substance: PAMIDRONATE DISODIUM
     Indication: PROPHYLAXIS
     Dosage: 90 MG, EVERY 3 MONTHS
     Route: 042
     Dates: start: 20160128
  14. OMEPRAZOLE. [Concomitant]
     Active Substance: OMEPRAZOLE
     Indication: GASTROOESOPHAGEAL REFLUX DISEASE
     Dosage: 20 MG, DAILY
     Route: 048
  15. PALBOCICLIB [Suspect]
     Active Substance: PALBOCICLIB
     Dosage: 100 MG, DAILY FOR 3 WEEKS FOLLOWED BY 1 WEEK OFF
     Route: 048
     Dates: start: 20160504, end: 20160515
  16. METONIA [Concomitant]
     Active Substance: METOCLOPRAMIDE
     Indication: CONSTIPATION
     Dosage: 10 MG, DAILY
     Route: 048
     Dates: start: 20151230
  17. M ESLON SR [Concomitant]
     Indication: PAIN
     Dosage: 30 MG, EVERY 12 HOURS
     Route: 048
     Dates: start: 20160104
  18. STATEX /00036302/ [Concomitant]
     Active Substance: MORPHINE SULFATE
     Indication: PAIN
     Dosage: 5 MG, AS NEEDED EVERY 1 TO 2 HOURS
     Route: 048
     Dates: start: 20151230
  19. DULCOLAX (BISACODYL) [Concomitant]
     Active Substance: BISACODYL
     Indication: CONSTIPATION
     Dosage: 10 MG, DAILY IN THE AFTERNOON (PM)
     Route: 048
  20. BISACODYL. [Concomitant]
     Active Substance: BISACODYL
     Indication: CONSTIPATION
     Dosage: 10 MG, AS NEEDED
     Route: 054
     Dates: start: 20160216

REACTIONS (2)
  - Gastritis [Recovered/Resolved]
  - Abdominal pain [Recovered/Resolved]

NARRATIVE: CASE EVENT DATE: 20160515
